FAERS Safety Report 6202330-X (Version None)
Quarter: 2009Q2

REPORT INFORMATION
  Report Type: 
  Country: None (occurrence: None)
  Receive Date: 20090520
  Receipt Date: 20090511
  Transmission Date: 20091009
  Serious: Yes (Hospitalization)
  Sender: FDA-Public Use
  Company Number: 09US001168

PATIENT
  Age: 35 Year
  Sex: Male

DRUGS (4)
  1. STAVZOR [Suspect]
     Indication: BIPOLAR DISORDER
     Dosage: 1000 MG, QD, ORAL
     Route: 048
     Dates: start: 20090101, end: 20090101
  2. ZOLOFT [Concomitant]
  3. LAMICTAL [Concomitant]
  4. KLONOPIN [Concomitant]

REACTIONS (3)
  - DRUG INEFFECTIVE [None]
  - MANIA [None]
  - PRODUCT SUBSTITUTION ISSUE [None]
